FAERS Safety Report 6186860-5 (Version None)
Quarter: 2009Q2

REPORT INFORMATION
  Report Type: 
  Country: None (occurrence: None)
  Receive Date: 20090508
  Receipt Date: 20090508
  Transmission Date: 20091009
  Serious: Yes (Hospitalization)
  Sender: FDA-Public Use
  Company Number: None

PATIENT
  Sex: Male
  Weight: 67.5 kg

DRUGS (9)
  1. RISPERIDONE [Suspect]
     Indication: DEMENTIA ALZHEIMER'S TYPE
     Dosage: AS ABOVE
     Dates: start: 20081224, end: 20090323
  2. RISPERIDONE [Suspect]
     Indication: PSYCHOTIC DISORDER
     Dosage: AS ABOVE
     Dates: start: 20081224, end: 20090323
  3. CARBIDOPAL [Concomitant]
  4. CLOPIDOGREL [Concomitant]
  5. ESCITALOPRAM [Concomitant]
  6. GALANTAMINE [Concomitant]
  7. SYNTHROID [Concomitant]
  8. LOVASTATIN [Concomitant]
  9. METFORMIN HCL [Concomitant]

REACTIONS (1)
  - BLADDER CANCER [None]
